FAERS Safety Report 9636613 (Version 1)
Quarter: 2013Q4

REPORT INFORMATION
  Report Type: Spontaneous
  Country: UY (occurrence: UY)
  Receive Date: 20131021
  Receipt Date: 20131021
  Transmission Date: 20140711
  Serious: No
  Sender: FDA-Public Use
  Company Number: UY-ROCHE-679935

PATIENT
  Age: 30 Year
  Sex: Female
  Weight: 100 kg

DRUGS (5)
  1. XENICAL [Suspect]
     Indication: OVERWEIGHT
     Route: 048
  2. XENICAL [Suspect]
     Dosage: FREQUENCY: DAILY
     Route: 048
  3. OMEPRAZOLE [Concomitant]
     Indication: GASTRITIS
     Route: 048
  4. ALPRAZOLAM [Concomitant]
     Indication: ABDOMINAL PAIN
     Route: 048
  5. ISOPROPAMIDE [Concomitant]
     Indication: ABDOMINAL PAIN
     Dosage: DRUG NAME REPORTED AS ISOPROPAMIDA
     Route: 065

REACTIONS (2)
  - Haematochezia [Unknown]
  - Frequent bowel movements [Unknown]
